FAERS Safety Report 7077716-4 (Version None)
Quarter: 2010Q4

REPORT INFORMATION
  Report Type: 
  Country: None (occurrence: None)
  Receive Date: 20101101
  Receipt Date: 20101025
  Transmission Date: 20110411
  Serious: Yes (Disabling)
  Sender: FDA-Public Use
  Company Number: US-BAYER-201022513BCC

PATIENT
  Age: 27 Year
  Sex: Female
  Weight: 57 kg

DRUGS (2)
  1. ALEVE (CAPLET) [Suspect]
     Indication: DYSMENORRHOEA
     Dosage: 440 OR 660 MG DAILY
     Route: 048
  2. VITAMIN E BY SUNDOWN [Concomitant]

REACTIONS (10)
  - DRY SKIN [None]
  - FATIGUE [None]
  - FEELING HOT [None]
  - HYPERSENSITIVITY [None]
  - INFECTED SKIN ULCER [None]
  - MUSCULAR WEAKNESS [None]
  - PAIN [None]
  - PRURITUS [None]
  - RASH GENERALISED [None]
  - SKIN BURNING SENSATION [None]
